FAERS Safety Report 12632113 (Version 2)
Quarter: 2016Q3

REPORT INFORMATION
  Report Type: Spontaneous
  Country: US (occurrence: US)
  Receive Date: 20160808
  Receipt Date: 20160808
  Transmission Date: 20161109
  Serious: No
  Sender: FDA-Public Use
  Company Number: US-BEH-2016061902

PATIENT
  Age: 42 Year
  Sex: Female
  Weight: 72 kg

DRUGS (15)
  1. LICORICE. [Concomitant]
     Active Substance: LICORICE
  2. FLOVENT DISKUS [Concomitant]
     Active Substance: FLUTICASONE PROPIONATE
  3. ARMOUR THYROID [Concomitant]
     Active Substance: THYROID, PORCINE
  4. HIZENTRA [Suspect]
     Active Substance: HUMAN IMMUNOGLOBULIN G
     Route: 058
  5. DIPHENHYDRAMINE. [Concomitant]
     Active Substance: DIPHENHYDRAMINE
  6. ADRENAL [Concomitant]
     Active Substance: EPINEPHRINE
  7. CORTEF [Concomitant]
     Active Substance: HYDROCORTISONE
  8. NALTREXONE [Concomitant]
     Active Substance: NALTREXONE
  9. COD LIVER OIL [Concomitant]
     Active Substance: COD LIVER OIL
  10. MAGNESIUM [Concomitant]
     Active Substance: MAGNESIUM
  11. EPIPEN [Concomitant]
     Active Substance: EPINEPHRINE
  12. VALTREX [Concomitant]
     Active Substance: VALACYCLOVIR HYDROCHLORIDE
  13. ORTISOL [Concomitant]
  14. HIZENTRA [Suspect]
     Active Substance: HUMAN IMMUNOGLOBULIN G
     Route: 058
  15. HIZENTRA [Suspect]
     Active Substance: HUMAN IMMUNOGLOBULIN G
     Indication: IMMUNODEFICIENCY COMMON VARIABLE
     Dosage: FREQUENCY: AS DIRECTED
     Route: 058

REACTIONS (1)
  - Influenza [Unknown]

NARRATIVE: CASE EVENT DATE: 20160205
